FAERS Safety Report 9216832 (Version 1)
Quarter: 2013Q2

REPORT INFORMATION
  Report Type: Spontaneous
  Country: US (occurrence: US)
  Receive Date: 20130408
  Receipt Date: 20130408
  Transmission Date: 20140414
  Serious: Yes (Hospitalization)
  Sender: FDA-Public Use
  Company Number: US-BAYER-2013-039566

PATIENT
  Age: 0 Year
  Sex: Female
  Weight: 2.5 kg

DRUGS (2)
  1. MIRENA [Suspect]
     Dosage: 20 ?G/D,CONT
     Route: 064
     Dates: start: 2012, end: 201205
  2. MIRENA [Suspect]
     Dosage: 20 ?G/D,CONT
     Route: 064
     Dates: start: 2012, end: 201205

REACTIONS (2)
  - Respiratory disorder neonatal [None]
  - Premature baby [None]
